FAERS Safety Report 17099002 (Version 2)
Quarter: 2019Q4

REPORT INFORMATION
  Report Type: Report from Study
  Country: US (occurrence: US)
  Receive Date: 20191202
  Receipt Date: 20191212
  Transmission Date: 20200122
  Serious: Yes (Other)
  Sender: FDA-Public Use
  Company Number: NVSC2019US055421

PATIENT
  Sex: Female

DRUGS (1)
  1. ENTRESTO [Suspect]
     Active Substance: SACUBITRIL\VALSARTAN
     Indication: PRODUCT USED FOR UNKNOWN INDICATION
     Dosage: UNK, BID
     Route: 048
     Dates: start: 201910

REACTIONS (6)
  - Systemic lupus erythematosus [Unknown]
  - Renal disorder [Unknown]
  - Peripheral swelling [Unknown]
  - Gout [Unknown]
  - Thyroid disorder [Unknown]
  - Arthritis [Unknown]
